FAERS Safety Report 7647736-7 (Version None)
Quarter: 2011Q3

REPORT INFORMATION
  Report Type: 
  Country: None (occurrence: None)
  Receive Date: 20110801
  Receipt Date: 20110801
  Transmission Date: 20111222
  Serious: Yes (Hospitalization)
  Sender: FDA-Public Use
  Company Number: None

PATIENT
  Age: 83 Year
  Sex: Male

DRUGS (6)
  1. PHENYTOIN [Suspect]
     Indication: CONVULSION
     Dosage: 100 MG
     Route: 042
     Dates: start: 20110204, end: 20110214
  2. ALBUMIN (HUMAN) [Concomitant]
     Route: 042
  3. SENSIPAR [Concomitant]
     Route: 048
  4. ZANTAC [Concomitant]
     Route: 048
  5. FORTAZ [Concomitant]
     Route: 042
  6. KEPPRA [Concomitant]
     Route: 042

REACTIONS (4)
  - COMA [None]
  - TOXICITY TO VARIOUS AGENTS [None]
  - ALANINE AMINOTRANSFERASE INCREASED [None]
  - ASPARTATE AMINOTRANSFERASE INCREASED [None]
